FAERS Safety Report 16896057 (Version 3)
Quarter: 2020Q2

REPORT INFORMATION
  Report Type: Report from Study
  Country: KR (occurrence: KR)
  Receive Date: 20191008
  Receipt Date: 20200622
  Transmission Date: 20200713
  Serious: Yes (Other)
  Sender: FDA-Public Use
  Company Number: KR-BIOGEN-2019BI00793923

PATIENT
  Age: 38 Year
  Sex: Male
  Weight: 84.8 kg

DRUGS (6)
  1. TECFIDERA [Suspect]
     Active Substance: DIMETHYL FUMARATE
     Indication: RELAPSING-REMITTING MULTIPLE SCLEROSIS
     Dosage: STARTING DOSE
     Route: 048
     Dates: start: 20170814, end: 20170827
  2. CURAN [Concomitant]
     Active Substance: RANITIDINE HYDROCHLORIDE
     Indication: PROPHYLAXIS
     Route: 065
     Dates: start: 20170911, end: 20190920
  3. TECFIDERA [Suspect]
     Active Substance: DIMETHYL FUMARATE
     Dosage: MAINTENANCE DOSE
     Route: 048
     Dates: start: 20170828
  4. AMODIPIN [Concomitant]
     Indication: HYPERTENSION
     Route: 065
     Dates: start: 20180827
  5. URSA [Concomitant]
     Active Substance: URSODIOL
     Indication: HEPATITIS TOXIC
     Route: 065
     Dates: start: 20161209
  6. LEGALON [Concomitant]
     Active Substance: DIETARY SUPPLEMENT\HERBALS\MILK THISTLE
     Indication: HEPATITIS TOXIC
     Route: 065
     Dates: start: 20161209

REACTIONS (5)
  - Headache [Recovered/Resolved]
  - Gamma-glutamyltransferase increased [Unknown]
  - Skin lesion [Recovered/Resolved]
  - Underdose [Recovered/Resolved]
  - Abdominal pain [Recovered/Resolved]

NARRATIVE: CASE EVENT DATE: 20170814
